FAERS Safety Report 6396131-X (Version None)
Quarter: 2009Q4

REPORT INFORMATION
  Report Type: 
  Country: None (occurrence: None)
  Receive Date: 20091009
  Receipt Date: 20090930
  Transmission Date: 20100525
  Serious: Yes (Hospitalization, Disabling)
  Sender: FDA-Public Use
  Company Number: FR-MERCK-0909FRA00086

PATIENT
  Age: 35 Year
  Sex: Male
  Weight: 84 kg

DRUGS (19)
  1. EMEND [Suspect]
     Indication: PROPHYLAXIS OF NAUSEA AND VOMITING
     Route: 048
     Dates: start: 20090609, end: 20090609
  2. EMEND [Suspect]
     Route: 048
     Dates: start: 20090610, end: 20090611
  3. EMEND [Suspect]
     Route: 048
     Dates: start: 20090624, end: 20090624
  4. EMEND [Suspect]
     Route: 048
     Dates: start: 20090625, end: 20090626
  5. EMEND [Suspect]
     Route: 048
     Dates: start: 20090707, end: 20090707
  6. EMEND [Suspect]
     Route: 048
     Dates: start: 20090708, end: 20090709
  7. EMEND [Suspect]
     Route: 048
     Dates: start: 20090724, end: 20090724
  8. EMEND [Suspect]
     Route: 048
     Dates: start: 20090725, end: 20090726
  9. EMEND [Suspect]
     Route: 048
     Dates: start: 20090804, end: 20090804
  10. EMEND [Suspect]
     Route: 048
     Dates: start: 20090805, end: 20090806
  11. VINBLASTINE SULFATE [Suspect]
     Indication: HODGKIN'S DISEASE STAGE III
     Route: 042
     Dates: start: 20090609, end: 20090724
  12. RITONAVIR [Suspect]
     Indication: HIV INFECTION
     Route: 048
     Dates: start: 20080101
  13. DARUNAVIR [Suspect]
     Indication: HIV INFECTION
     Route: 048
     Dates: start: 20080101
  14. LINEZOLID [Suspect]
     Indication: HODGKIN'S DISEASE STAGE III
     Route: 048
     Dates: start: 20090613, end: 20090619
  15. LINEZOLID [Suspect]
     Route: 048
     Dates: start: 20090724, end: 20090731
  16. EMTRICITABINE AND TENOFOVIR DISOPROXIL FUMARATE [Concomitant]
     Indication: HIV INFECTION
     Route: 048
     Dates: start: 20080101, end: 20090724
  17. BLEOMYCIN [Concomitant]
     Indication: HODGKIN'S DISEASE STAGE III
     Route: 065
     Dates: start: 20090609
  18. DOXORUBICIN [Concomitant]
     Indication: HODGKIN'S DISEASE STAGE III
     Route: 065
     Dates: start: 20090609
  19. DACARBAZINE [Concomitant]
     Indication: HODGKIN'S DISEASE STAGE III
     Route: 065
     Dates: start: 20090609

REACTIONS (2)
  - PERIPHERAL MOTOR NEUROPATHY [None]
  - PERIPHERAL SENSORY NEUROPATHY [None]
